FAERS Safety Report 8925823 (Version 1)
Quarter: 2012Q4

REPORT INFORMATION
  Report Type: 
  Country: MX (occurrence: MX)
  Receive Date: 20121126
  Receipt Date: 20121126
  Transmission Date: 20130627
  Serious: Yes (Other)
  Sender: FDA-Public Use
  Company Number: PHHY2012MX107137

PATIENT
  Age: 64 None
  Sex: Male

DRUGS (3)
  1. DIOVAN [Suspect]
     Indication: HYPERTENSION
     Dosage: 160 mg, daily
     Route: 048
  2. NEXUS [Concomitant]
     Indication: HYPERTENSION
     Dosage: 1 DF, daily
     Dates: start: 20121113
  3. ASPIRINA [Concomitant]
     Indication: BLOOD VISCOSITY INCREASED
     Dosage: 1 DF, daily
     Dates: start: 2011

REACTIONS (3)
  - Blood uric acid increased [Not Recovered/Not Resolved]
  - Micturition disorder [Not Recovered/Not Resolved]
  - Muscle spasms [Not Recovered/Not Resolved]
